FAERS Safety Report 10649540 (Version 1)
Quarter: 2014Q4

REPORT INFORMATION
  Report Type: Spontaneous
  Country: US (occurrence: None)
  Receive Date: 20141211
  Receipt Date: 20141211
  Transmission Date: 20150529
  Serious: Yes (Hospitalization)
  Sender: FDA-Public Use
  Company Number: None

PATIENT
  Age: 67 Year
  Sex: Male
  Weight: 106 kg

DRUGS (1)
  1. RITUXIMAB (MOAB C2B8 ANTI CD20, CHIMERIC) [Suspect]
     Active Substance: RITUXIMAB
     Dates: end: 20141125

REACTIONS (7)
  - Blood creatinine increased [None]
  - Febrile neutropenia [None]
  - Anaemia [None]
  - Hypotension [None]
  - Staphylococcus test positive [None]
  - Blood culture positive [None]
  - Asthenia [None]

NARRATIVE: CASE EVENT DATE: 20141204
